FAERS Safety Report 4770843-3 (Version None)
Quarter: 2005Q3

REPORT INFORMATION
  Report Type: 
  Country: None (occurrence: None)
  Receive Date: 20050915
  Receipt Date: 20050905
  Transmission Date: 20060218
  Serious: Yes (Death)
  Sender: FDA-Public Use
  Company Number: HCM-0116

PATIENT
  Age: 53 Year
  Sex: Female

DRUGS (12)
  1. TOPOTECAN [Suspect]
     Indication: SMALL CELL LUNG CANCER STAGE UNSPECIFIED
     Route: 042
     Dates: start: 20030708, end: 20030911
  2. ZOPICLONE [Concomitant]
     Dosage: 7.5MG PER DAY
     Route: 048
     Dates: start: 20030708, end: 20030923
  3. SENNOSIDE [Concomitant]
     Route: 048
     Dates: start: 20030708, end: 20030907
  4. GRANISETRON  HCL [Concomitant]
     Dosage: 3MG PER DAY
     Dates: start: 20030708, end: 20030911
  5. SODIUM PICOSULFATE [Concomitant]
     Route: 048
     Dates: start: 20030710, end: 20031015
  6. BROTIZOLAM [Concomitant]
     Dosage: .25MG PER DAY
     Route: 048
     Dates: start: 20030709, end: 20030924
  7. MORPHINE HYDROCHLORIDE [Concomitant]
     Route: 048
     Dates: start: 20030708, end: 20031015
  8. LOXOPROFEN SODIUM [Concomitant]
     Dosage: 180MG PER DAY
     Route: 048
     Dates: start: 20030708, end: 20031015
  9. REBAMIPIDE [Concomitant]
     Dosage: 300MG PER DAY
     Route: 048
     Dates: start: 20030705, end: 20031015
  10. PANTETHINE [Concomitant]
     Route: 048
     Dates: start: 20030708, end: 20031015
  11. MAGNESIUM OXIDE [Concomitant]
     Route: 048
     Dates: start: 20030708, end: 20031015
  12. MORPHINE SULFATE [Concomitant]
     Route: 048
     Dates: start: 20030805, end: 20031015

REACTIONS (6)
  - BLOOD LACTATE DEHYDROGENASE INCREASED [None]
  - HAEMOGLOBIN DECREASED [None]
  - LEUKOPENIA [None]
  - PANCYTOPENIA [None]
  - SMALL CELL LUNG CANCER STAGE UNSPECIFIED [None]
  - VOMITING [None]
